FAERS Safety Report 17180547 (Version 1)
Quarter: 2019Q4

REPORT INFORMATION
  Report Type: Spontaneous
  Country: CH (occurrence: CH)
  Receive Date: 20191219
  Receipt Date: 20191219
  Transmission Date: 20200122
  Serious: Yes (Life-Threatening, Hospitalization, Other)
  Sender: FDA-Public Use
  Company Number: CH-PFIZER INC-2019542755

PATIENT
  Age: 59 Year
  Sex: Male

DRUGS (4)
  1. ATORVASTATIN PFIZER [Suspect]
     Active Substance: ATORVASTATIN
     Indication: HYPERCHOLESTEROLAEMIA
     Dosage: 20 MG, 1X/DAY, 1-0-0-0 (FOR ABOUT 2 YEARS)
     Route: 048
     Dates: start: 2017, end: 20191119
  2. COVERSUM N COMBI [Suspect]
     Active Substance: INDAPAMIDE\PERINDOPRIL ARGININE
     Indication: HYPERTENSION
     Dosage: 1 DF, 1X/DAY, 1-0-0-0 (FOR ABOUT 2 YEARS )
     Route: 048
     Dates: start: 2017, end: 20191119
  3. AMLODIPINE [Suspect]
     Active Substance: AMLODIPINE BESYLATE
     Indication: HYPERTENSION
     Dosage: 5 MG, 1X/DAY, 0-0-0-1 (FOR ABOUT 2 YEARS )
     Route: 048
     Dates: start: 2017, end: 20191119
  4. CIPROXIN [CIPROFLOXACIN HYDROCHLORIDE] [Suspect]
     Active Substance: CIPROFLOXACIN HYDROCHLORIDE
     Indication: URINE ABNORMALITY
     Dosage: 1 DF, UNK
     Route: 048
     Dates: start: 20191104, end: 20191111

REACTIONS (8)
  - Myalgia [Unknown]
  - Drug reaction with eosinophilia and systemic symptoms [Recovering/Resolving]
  - Urine abnormality [Unknown]
  - Haemangioma of liver [Unknown]
  - Acute kidney injury [Recovered/Resolved]
  - Eosinophilia [Not Recovered/Not Resolved]
  - Acute hepatic failure [Recovering/Resolving]
  - Rash [Recovering/Resolving]

NARRATIVE: CASE EVENT DATE: 20191029
